FAERS Safety Report 5032643-9 (Version None)
Quarter: 2006Q2

REPORT INFORMATION
  Report Type: 
  Country: None (occurrence: None)
  Receive Date: 20060620
  Receipt Date: 20060620
  Transmission Date: 20061013
  Serious: Yes (Disabling)
  Sender: FDA-Public Use
  Company Number: None

PATIENT
  Age: 26 Year
  Sex: Female
  Weight: 72.5755 kg

DRUGS (1)
  1. ALDARA [Suspect]
     Dosage: SMALL AMOUNT 3 TIMES A WEEK TOPICAL
     Route: 061
     Dates: start: 20041001

REACTIONS (6)
  - GENITAL DISORDER FEMALE [None]
  - GENITAL ERYTHEMA [None]
  - GENITAL PAIN FEMALE [None]
  - SWELLING [None]
  - VAGINAL MUCOSAL BLISTERING [None]
  - VULVAL DISORDER [None]
